FAERS Safety Report 17729765 (Version 1)
Quarter: 2020Q2

REPORT INFORMATION
  Report Type: Report from Study
  Country: GB (occurrence: GB)
  Receive Date: 20200430
  Receipt Date: 20200430
  Transmission Date: 20200714
  Serious: Yes (Other)
  Sender: FDA-Public Use
  Company Number: GB-JNJFOC-20200436810

PATIENT
  Sex: Female

DRUGS (4)
  1. STELARA [Suspect]
     Active Substance: USTEKINUMAB
     Indication: CROHN^S DISEASE
     Route: 058
     Dates: start: 2020
  2. AZATHIOPRINE. [Concomitant]
     Active Substance: AZATHIOPRINE
  3. PENTOXIL [Concomitant]
     Active Substance: PENTOXIFYLLINE
  4. STELARA [Suspect]
     Active Substance: USTEKINUMAB

REACTIONS (2)
  - Fistula [Unknown]
  - Infection [Unknown]
